FAERS Safety Report 9758214 (Version 1)
Quarter: 2013Q4

REPORT INFORMATION
  Report Type: Spontaneous
  Country: US (occurrence: None)
  Receive Date: 20131213
  Receipt Date: 20131213
  Transmission Date: 20140711
  Serious: Yes (Hospitalization, Disabling, Other)
  Sender: FDA-Public Use
  Company Number: None

PATIENT
  Age: 42 Year
  Sex: Female

DRUGS (1)
  1. CLINDAMYCIN [Suspect]
     Indication: MYOMECTOMY
     Dosage: AT LEAST 15 PILLS  THREE TIMES DAILY  TAKEN BY MOUTH
     Route: 048
     Dates: start: 20110607, end: 20110616

REACTIONS (7)
  - Diarrhoea [None]
  - Pyoderma gangrenosum [None]
  - Ulcer [None]
  - Pain [None]
  - Scar [None]
  - Impaired healing [None]
  - Deformity [None]
